FAERS Safety Report 7780331-8 (Version None)
Quarter: 2011Q3

REPORT INFORMATION
  Report Type: 
  Country: None (occurrence: None)
  Receive Date: 20110927
  Receipt Date: 20110922
  Transmission Date: 20111222
  Serious: Yes (Other)
  Sender: FDA-Public Use
  Company Number: US-SANOFI-AVENTIS-2011SA003968

PATIENT
  Age: 78 Year
  Sex: Female

DRUGS (10)
  1. MULTAQ [Suspect]
     Indication: ATRIAL FIBRILLATION
     Route: 048
     Dates: start: 20100101
  2. DABIGATRAN ETEXILATE [Concomitant]
  3. MULTAQ [Suspect]
     Route: 048
  4. MULTAQ [Suspect]
     Route: 048
  5. METOPROLOL TARTRATE [Concomitant]
  6. MULTAQ [Suspect]
     Route: 048
  7. ZOCOR [Concomitant]
  8. METOPROLOL TARTRATE [Concomitant]
  9. MULTAQ [Suspect]
     Route: 048
  10. ASPIRIN [Concomitant]

REACTIONS (7)
  - ASTHENIA [None]
  - ATRIAL FIBRILLATION [None]
  - DRUG INTOLERANCE [None]
  - FATIGUE [None]
  - HEART RATE DECREASED [None]
  - INAPPROPRIATE SCHEDULE OF DRUG ADMINISTRATION [None]
  - NAUSEA [None]
